FAERS Safety Report 11603402 (Version 1)
Quarter: 2015Q4

REPORT INFORMATION
  Report Type: Other
  Country: CA (occurrence: CA)
  Receive Date: 20151007
  Receipt Date: 20151007
  Transmission Date: 20160304
  Serious: Yes (Hospitalization, Other)
  Sender: FDA-Public Use
  Company Number: CA-ORCHID HEALTHCARE-1042674

PATIENT
  Age: 63 Year
  Sex: Male
  Weight: 74 kg

DRUGS (1)
  1. TERBINAFINE HYDROCHLORIDE. [Suspect]
     Active Substance: TERBINAFINE HYDROCHLORIDE
     Indication: ONYCHOMYCOSIS
     Route: 048
     Dates: start: 20090805, end: 20090924

REACTIONS (3)
  - Drug interaction [Recovered/Resolved]
  - Sinus bradycardia [Recovered/Resolved]
  - Dementia [Recovering/Resolving]

NARRATIVE: CASE EVENT DATE: 20090923
